FAERS Safety Report 24451190 (Version 2)
Quarter: 2024Q4

REPORT INFORMATION
  Report Type: Spontaneous
  Country: US (occurrence: US)
  Receive Date: 20241017
  Receipt Date: 20241101
  Transmission Date: 20250115
  Serious: Yes (Hospitalization)
  Sender: TEVA
  Company Number: US-TEVA-VS-3253878

PATIENT
  Age: 78 Year
  Sex: Female

DRUGS (2)
  1. BUDESONIDE [Suspect]
     Active Substance: BUDESONIDE
     Indication: Colitis microscopic
     Route: 048
  2. LOPERAMIDE [Suspect]
     Active Substance: LOPERAMIDE
     Indication: Colitis microscopic
     Route: 048

REACTIONS (4)
  - Clostridium difficile colitis [Recovering/Resolving]
  - Hypovolaemic shock [Recovering/Resolving]
  - Drug ineffective [Unknown]
  - Pseudomembranous colitis [Recovering/Resolving]
